FAERS Safety Report 7197176-2 (Version None)
Quarter: 2010Q4

REPORT INFORMATION
  Report Type: 
  Country: None (occurrence: None)
  Receive Date: 20101224
  Receipt Date: 20101217
  Transmission Date: 20110411
  Serious: Yes (Other)
  Sender: FDA-Public Use
  Company Number: US-PURDUE-USA-2010-0059786

PATIENT
  Sex: Female

DRUGS (4)
  1. OXYCONTIN [Suspect]
     Indication: PAIN
  2. PERCOCET [Suspect]
     Indication: PAIN
  3. FENTANYL [Suspect]
     Indication: PAIN
     Route: 062
  4. LIDODERM [Suspect]
     Indication: PAIN

REACTIONS (1)
  - HEPATIC CIRRHOSIS [None]
